FAERS Safety Report 14999394 (Version 1)
Quarter: 2018Q2

REPORT INFORMATION
  Report Type: Spontaneous
  Country: US (occurrence: US)
  Receive Date: 20180522
  Receipt Date: 20180522
  Transmission Date: 20180711
  Serious: Yes (Hospitalization, Other)
  Sender: FDA-Public Use
  Company Number: None

PATIENT
  Age: 57 Year
  Sex: Male

DRUGS (9)
  1. SANDOSTATIN [Suspect]
     Active Substance: OCTREOTIDE ACETATE
     Indication: PRODUCT USED FOR UNKNOWN INDICATION
     Route: 030
     Dates: start: 20180130
  2. TYLENOL [Concomitant]
     Active Substance: ACETAMINOPHEN
  3. HUMULIN NOS [Concomitant]
     Active Substance: INSULIN HUMAN
  4. INFUVITE [Concomitant]
     Active Substance: VITAMINS
  5. MULTI VIT [Concomitant]
  6. ATENOLOL. [Concomitant]
     Active Substance: ATENOLOL
  7. TPN ELECTROL [Concomitant]
  8. FAMOTIDINE. [Concomitant]
     Active Substance: FAMOTIDINE
  9. LORATADINE. [Concomitant]
     Active Substance: LORATADINE

REACTIONS (1)
  - Hospitalisation [None]

NARRATIVE: CASE EVENT DATE: 20180501
